FAERS Safety Report 8817658 (Version 1)
Quarter: 2012Q4

REPORT INFORMATION
  Report Type: 
  Country: ZA (occurrence: ZA)
  Receive Date: 20121001
  Receipt Date: 20121001
  Transmission Date: 20130627
  Serious: Yes (Other)
  Sender: FDA-Public Use
  Company Number: PHHY2012ZA084821

PATIENT
  Sex: Female

DRUGS (5)
  1. ACLASTA [Suspect]
     Dosage: 5 mg
     Route: 042
     Dates: start: 201109
  2. ECOTRIN [Concomitant]
  3. THYROXINE SODIUM [Concomitant]
  4. RAMIPRIL [Concomitant]
  5. UNAT [Concomitant]
     Indication: CARDIAC DISORDER

REACTIONS (4)
  - Fall [Unknown]
  - Gait disturbance [Unknown]
  - Oedema peripheral [Unknown]
  - Pain [Unknown]
